FAERS Safety Report 5817792-7 (Version None)
Quarter: 2008Q3

REPORT INFORMATION
  Report Type: 
  Country: None (occurrence: None)
  Receive Date: 20080722
  Receipt Date: 20080711
  Transmission Date: 20090109
  Serious: Yes (Hospitalization, Other)
  Sender: FDA-Public Use
  Company Number: NO-BAXTER-2008BH007450

PATIENT
  Age: 59 Year
  Sex: Male

DRUGS (8)
  1. SEVOFLURANE [Suspect]
     Indication: ANAESTHESIA
     Dosage: USED DURING FOUR SURGERYS IN THE TIMEPERIODE DOSE UNIT:UNKNOWN
     Route: 065
     Dates: start: 20070621, end: 20070621
  2. SEVOFLURANE [Suspect]
     Dosage: DOSE UNIT:UNKNOWN
     Route: 065
     Dates: start: 20070626, end: 20070626
  3. SEVOFLURANE [Suspect]
     Dosage: DOSE UNIT:UNKNOWN
     Route: 065
     Dates: start: 20080213, end: 20080213
  4. SEVOFLURANE [Suspect]
     Dosage: DOSE UNIT:UNKNOWN
     Route: 065
     Dates: start: 20080219, end: 20080219
  5. MIDAZOLAM HCL [Concomitant]
     Indication: ANAESTHESIA
     Dosage: USED DURING THREE SURGERYS IN THE TIMEPERIODE
     Dates: start: 20070621, end: 20080219
  6. FENTANYL-100 [Concomitant]
     Indication: ANAESTHESIA
     Dosage: USED DURING FOUR SURGERYS IN THE TIMEPERIODE
     Dates: start: 20070621, end: 20080219
  7. PENTOTHAL [Concomitant]
     Indication: ANAESTHESIA
     Dosage: USED DURING FOUR SURGERYS IN THE TIMEPERIODE
     Dates: start: 20070621, end: 20080219
  8. VECURONIUM BROMIDE [Concomitant]
     Indication: ANAESTHESIA
     Dosage: USED DURING FOUR SURGERYS IN THE TIMEPERIODE
     Dates: start: 20070621, end: 20080219

REACTIONS (3)
  - HEPATIC ENZYME INCREASED [None]
  - JAUNDICE [None]
  - RECTAL CANCER [None]
